FAERS Safety Report 24466575 (Version 1)
Quarter: 2024Q4

REPORT INFORMATION
  Report Type: Spontaneous
  Country: US (occurrence: US)
  Receive Date: 20241018
  Receipt Date: 20241018
  Transmission Date: 20250115
  Serious: No
  Sender: ROCHE
  Company Number: US-ROCHE-3547714

PATIENT
  Age: 43 Year
  Sex: Female
  Weight: 79.38 kg

DRUGS (6)
  1. XOLAIR [Suspect]
     Active Substance: OMALIZUMAB
     Indication: Urticaria
     Route: 058
     Dates: start: 20240402
  2. XOLAIR [Suspect]
     Active Substance: OMALIZUMAB
  3. ALLEGRA [Concomitant]
     Active Substance: FEXOFENADINE HYDROCHLORIDE
     Indication: Urticaria
     Route: 048
     Dates: start: 202301
  4. PEPCID [Concomitant]
     Active Substance: FAMOTIDINE
     Indication: Urticaria
     Dosage: AT NIGHT
     Route: 048
     Dates: start: 202301
  5. SINGULAIR [Concomitant]
     Active Substance: MONTELUKAST SODIUM
     Indication: Urticaria
     Dosage: AT NIGHT
     Route: 048
     Dates: start: 202301
  6. HYDROXYZINE [Concomitant]
     Active Substance: HYDROXYZINE HYDROCHLORIDE

REACTIONS (2)
  - Anxiety [Recovering/Resolving]
  - Heart rate increased [Recovered/Resolved]

NARRATIVE: CASE EVENT DATE: 20240403
